FAERS Safety Report 9249528 (Version 1)
Quarter: 2013Q1

REPORT INFORMATION
  Report Type: Spontaneous
  Country: US (occurrence: None)
  Receive Date: 20130305
  Receipt Date: 20130305
  Transmission Date: 20140127
  Serious: Yes (Other)
  Sender: FDA-Public Use
  Company Number: 163-21880-12100847

PATIENT
  Age: 81 Year
  Sex: Female

DRUGS (15)
  1. REVLIMID [Suspect]
     Indication: PLASMA CELL MYELOMA
     Dosage: 15 MG, 21 IN 21 D, PO
     Route: 048
     Dates: start: 201201
  2. ZOMETA (ZOLEDRONIC ACID) [Concomitant]
  3. VITAMIN D3 (COLECALCIFEROL) [Concomitant]
  4. VITAMIN C [Concomitant]
  5. MAGNESIUM (MAGNESIUM) [Concomitant]
  6. PLAVIX (CLOPIDOGREL SULFATE) [Concomitant]
  7. MAGNESIUM HYDROXIDE [Concomitant]
  8. PHENERGAN [Concomitant]
  9. LYRICA (PREGABALIN) [Concomitant]
  10. OXYCODONE (OXYCODONE) [Concomitant]
  11. CIPRO [Concomitant]
  12. AMBIEN (ZOLPIDEM TARTRATE) [Concomitant]
  13. ATENOLOL (ATENOLOL) [Concomitant]
  14. ASA (ACETYLSALICYLIC ACID) [Concomitant]
  15. BENICAR (OLMESARAN MEDOXOMIL) [Concomitant]

REACTIONS (1)
  - Diverticulitis [None]
